FAERS Safety Report 23737872 (Version 1)
Quarter: 2024Q2

REPORT INFORMATION
  Report Type: Spontaneous
  Country: DE (occurrence: None)
  Receive Date: 20240412
  Receipt Date: 20240412
  Transmission Date: 20240716
  Serious: Yes (Other)
  Sender: FDA-Public Use
  Company Number: 2024A084546

PATIENT

DRUGS (1)
  1. ACALABRUTINIB [Suspect]
     Active Substance: ACALABRUTINIB
     Route: 048

REACTIONS (6)
  - Renal failure [Unknown]
  - Dry skin [Unknown]
  - Pruritus [Unknown]
  - Eczema [Unknown]
  - Conjunctivitis [Unknown]
  - Diarrhoea [Unknown]
